FAERS Safety Report 4521806-4 (Version None)
Quarter: 2004Q4

REPORT INFORMATION
  Report Type: 
  Country: None (occurrence: None)
  Receive Date: 20041209
  Receipt Date: 20041202
  Transmission Date: 20050328
  Serious: Yes (Other)
  Sender: FDA-Public Use
  Company Number: US-JNJFOC-20041201075

PATIENT
  Age: 61 Year
  Sex: Female
  Weight: 102.06 kg

DRUGS (7)
  1. TOPAMAX [Suspect]
     Dosage: 500 MG/AM  500 MG/PM
     Route: 049
     Dates: start: 20030101
  2. SYNTHROID [Concomitant]
     Indication: HYPOTHYROIDISM
  3. TIAZAC [Concomitant]
     Indication: HYPERTENSION
  4. PROZAC [Concomitant]
     Indication: DEPRESSION
  5. ASPIRIN [Concomitant]
     Indication: ANTICOAGULANT THERAPY
  6. LIPITOR [Concomitant]
  7. PROTONIX [Concomitant]

REACTIONS (2)
  - NEPHROLITHIASIS [None]
  - RENAL NEOPLASM [None]
